FAERS Safety Report 23536207 (Version 1)
Quarter: 2024Q1

REPORT INFORMATION
  Report Type: Spontaneous
  Country: US (occurrence: US)
  Receive Date: 20240219
  Receipt Date: 20240219
  Transmission Date: 20240410
  Serious: Yes (Hospitalization)
  Sender: FDA-Public Use
  Company Number: US-NOVOPROD-1175348

PATIENT
  Age: 80 Year
  Sex: Female

DRUGS (1)
  1. LEVEMIR [Suspect]
     Active Substance: INSULIN DETEMIR
     Indication: Type 2 diabetes mellitus
     Dosage: UNK
     Route: 058

REACTIONS (9)
  - Sepsis [Unknown]
  - Cartilage atrophy [Recovering/Resolving]
  - Condition aggravated [Recovering/Resolving]
  - Myocardial infarction [Recovered/Resolved]
  - Breast cancer [Recovered/Resolved]
  - Upper limb fracture [Recovered/Resolved]
  - Hypoacusis [Not Recovered/Not Resolved]
  - Injection site nodule [Unknown]
  - Injection site haemorrhage [Unknown]

NARRATIVE: CASE EVENT DATE: 20140603
